FAERS Safety Report 13376763 (Version 1)
Quarter: 2017Q1

REPORT INFORMATION
  Report Type: Spontaneous
  Country: IT (occurrence: IT)
  Receive Date: 20170328
  Receipt Date: 20170328
  Transmission Date: 20170429
  Serious: Yes (Other)
  Sender: FDA-Public Use
  Company Number: IT-AUROBINDO-AUR-APL-2017-31370

PATIENT
  Age: 45 Year
  Sex: Female

DRUGS (1)
  1. CIPROFLOXACIN. [Suspect]
     Active Substance: CIPROFLOXACIN
     Indication: URINARY TRACT INFECTION
     Dosage: 1 DF, DAILY
     Route: 048
     Dates: start: 20151112, end: 20151118

REACTIONS (2)
  - Rash papular [Recovering/Resolving]
  - Roseola [Recovering/Resolving]

NARRATIVE: CASE EVENT DATE: 20151118
